FAERS Safety Report 24601684 (Version 1)
Quarter: 2024Q4

REPORT INFORMATION
  Report Type: Spontaneous
  Country: US (occurrence: US)
  Receive Date: 20241111
  Receipt Date: 20241111
  Transmission Date: 20250115
  Serious: Yes (Other)
  Sender: ABBVIE
  Company Number: US-ABBVIE-5991776

PATIENT
  Sex: Female

DRUGS (11)
  1. HUMIRA [Suspect]
     Active Substance: ADALIMUMAB
     Indication: Product used for unknown indication
     Route: 058
  2. XELJANZ [Suspect]
     Active Substance: TOFACITINIB CITRATE
     Indication: Arthritis
     Dosage: EXPIRATION DATE:MAY2018 TO 2019
     Route: 048
     Dates: start: 2014, end: 2019
  3. XELJANZ [Suspect]
     Active Substance: TOFACITINIB CITRATE
     Indication: Arthritis
     Dosage: STOP DATE 2024
     Route: 048
     Dates: start: 202407
  4. XELJANZ [Suspect]
     Active Substance: TOFACITINIB CITRATE
     Indication: Arthritis
     Route: 048
     Dates: start: 2024, end: 2024
  5. INFLUENZA VIRUS VACCINE [Suspect]
     Active Substance: INFLUENZA VIRUS VACCINE
     Indication: Immunisation
     Route: 065
  6. TRAMADOL [Concomitant]
     Active Substance: TRAMADOL
     Indication: Pain
     Route: 065
     Dates: start: 2014
  7. CLINORIL [Concomitant]
     Active Substance: SULINDAC
     Indication: Arthritis
     Route: 065
  8. FOLIC ACID [Concomitant]
     Active Substance: FOLIC ACID
     Indication: Product used for unknown indication
     Route: 065
     Dates: start: 2014
  9. METHOTREXATE [Concomitant]
     Active Substance: METHOTREXATE
     Indication: Immunosuppressant drug therapy
     Route: 065
     Dates: start: 2014
  10. PREDNISOLONE [Concomitant]
     Active Substance: PREDNISOLONE
     Indication: Product used for unknown indication
     Route: 065
  11. FLAGYL [Concomitant]
     Active Substance: METRONIDAZOLE\METRONIDAZOLE HYDROCHLORIDE
     Indication: Product used for unknown indication
     Route: 065

REACTIONS (13)
  - Knee operation [Unknown]
  - Drug ineffective [Unknown]
  - Arthritis infective [Unknown]
  - Joint effusion [Unknown]
  - Viral infection [Unknown]
  - Weight increased [Unknown]
  - Impaired work ability [Unknown]
  - Joint injury [Unknown]
  - Arthropathy [Unknown]
  - Arthralgia [Unknown]
  - Infection [Unknown]
  - Furuncle [Unknown]
  - Joint swelling [Unknown]

NARRATIVE: CASE EVENT DATE: 20160101
